FAERS Safety Report 13836590 (Version 3)
Quarter: 2017Q3

REPORT INFORMATION
  Report Type: Spontaneous
  Country: IN (occurrence: IN)
  Receive Date: 20170804
  Receipt Date: 20170914
  Transmission Date: 20171127
  Serious: Yes (Other)
  Sender: FDA-Public Use
  Company Number: IN-ABBVIE-17P-078-2062622-00

PATIENT
  Sex: Male

DRUGS (4)
  1. VALPARIN CHRONO [Suspect]
     Active Substance: VALPROIC ACID
     Route: 048
  2. CLOBAZAM [Concomitant]
     Active Substance: CLOBAZAM
     Indication: PRODUCT USED FOR UNKNOWN INDICATION
  3. VALPARIN CHRONO [Suspect]
     Active Substance: VALPROIC ACID
     Indication: SEIZURE
     Route: 048
  4. VALPARIN CHRONO [Suspect]
     Active Substance: VALPROIC ACID
     Dosage: EXTENDED RELEASE
     Route: 048
     Dates: start: 201706, end: 20170728

REACTIONS (2)
  - Product physical issue [Unknown]
  - Seizure [Recovered/Resolved]
